FAERS Safety Report 14327962 (Version 4)
Quarter: 2018Q3

REPORT INFORMATION
  Report Type: Spontaneous
  Country: JP (occurrence: JP)
  Receive Date: 20171227
  Receipt Date: 20180921
  Transmission Date: 20181010
  Serious: Yes (Death, Other)
  Sender: FDA-Public Use
  Company Number: JP-BAYER-2017-183321

PATIENT
  Age: 61 Year
  Sex: Male
  Weight: 53.1 kg

DRUGS (9)
  1. STIVARGA [Suspect]
     Active Substance: REGORAFENIB
     Indication: HEPATOCELLULAR CARCINOMA
     Dosage: DAILY DOSE 120 MG
     Route: 048
     Dates: start: 20170817, end: 20170826
  2. STIVARGA [Suspect]
     Active Substance: REGORAFENIB
     Indication: HEPATOCELLULAR CARCINOMA
     Dosage: DAILY DOSE 80 MG
     Route: 048
     Dates: start: 20170901, end: 20170907
  3. STIVARGA [Suspect]
     Active Substance: REGORAFENIB
     Indication: HEPATOCELLULAR CARCINOMA
     Dosage: DAILY DOSE 80 MG
     Route: 048
     Dates: start: 20170913, end: 20170919
  4. BARACLUDE [Concomitant]
     Active Substance: ENTECAVIR
  5. AMLODIPINE [Concomitant]
     Active Substance: AMLODIPINE BESYLATE
     Dosage: DAILY DOSE 5 MG
  6. STIVARGA [Suspect]
     Active Substance: REGORAFENIB
     Indication: HEPATOCELLULAR CARCINOMA
     Dosage: DAILY DOSE 40 MG
     Route: 048
     Dates: start: 20170920, end: 20170926
  7. STIVARGA [Suspect]
     Active Substance: REGORAFENIB
     Indication: HEPATOCELLULAR CARCINOMA
     Dosage: DAILY DOSE 80 MG
     Route: 048
     Dates: start: 20170927, end: 20171003
  8. TENOFOVIR DISOPROXIL FUMARATE. [Concomitant]
     Active Substance: TENOFOVIR DISOPROXIL FUMARATE
     Indication: HEPATIC CANCER
     Dosage: DAILY DOSE 25 MG
     Route: 048
  9. URSO [Concomitant]
     Active Substance: URSODIOL
     Indication: HEPATIC CANCER
     Dosage: DAILY DOSE 900 MG
     Route: 048

REACTIONS (5)
  - Prescribed underdose [None]
  - VIth nerve paralysis [Unknown]
  - Hepatocellular carcinoma [Fatal]
  - Diplopia [Recovering/Resolving]
  - Liver disorder [Recovered/Resolved]

NARRATIVE: CASE EVENT DATE: 20170821
